FAERS Safety Report 25890159 (Version 1)
Quarter: 2025Q4

REPORT INFORMATION
  Report Type: Spontaneous
  Country: US (occurrence: US)
  Receive Date: 20251007
  Receipt Date: 20251007
  Transmission Date: 20260118
  Serious: No
  Sender: ANI
  Company Number: US-ANIPHARMA-030842

PATIENT
  Age: 31 Year
  Sex: Male
  Weight: 80.29 kg

DRUGS (1)
  1. VALPROIC ACID [Suspect]
     Active Substance: VALPROIC ACID
     Indication: Seizure
     Dosage: STRENGTH: 250 MG/5ML
     Route: 048

REACTIONS (1)
  - Drug ineffective [Unknown]
